FAERS Safety Report 14081150 (Version 1)
Quarter: 2017Q4

REPORT INFORMATION
  Report Type: Spontaneous
  Country: US (occurrence: US)
  Receive Date: 20171012
  Receipt Date: 20171012
  Transmission Date: 20180321
  Serious: Yes (Disabling)
  Sender: FDA-Public Use
  Company Number: None

PATIENT
  Age: 60 Year
  Sex: Female
  Weight: 78.75 kg

DRUGS (3)
  1. VALSARTAN/HCT [Concomitant]
     Active Substance: HYDROCHLOROTHIAZIDE\VALSARTAN
  2. METHYLPREDNISOLONE. [Suspect]
     Active Substance: METHYLPREDNISOLONE
     Indication: PAIN IN EXTREMITY
     Dosage: ?          QUANTITY:1 TABLET(S);OTHER FREQUENCY:4 DAYS;?
     Route: 048
  3. METHYLPREDNISOLONE. [Suspect]
     Active Substance: METHYLPREDNISOLONE
     Indication: ARTHRALGIA
     Dosage: ?          QUANTITY:1 TABLET(S);OTHER FREQUENCY:4 DAYS;?
     Route: 048

REACTIONS (7)
  - Asthenia [None]
  - Gait disturbance [None]
  - Mental impairment [None]
  - Mobility decreased [None]
  - Hypersensitivity [None]
  - Nerve injury [None]
  - Vision blurred [None]

NARRATIVE: CASE EVENT DATE: 20170523
